FAERS Safety Report 4475806-3 (Version None)
Quarter: 2004Q3

REPORT INFORMATION
  Report Type: 
  Country: None (occurrence: None)
  Receive Date: 20040923
  Receipt Date: 20040708
  Transmission Date: 20050211
  Serious: No
  Sender: FDA-Public Use
  Company Number: USA040772127

PATIENT
  Age: 80 Year
  Sex: Female

DRUGS (3)
  1. FORTEO [Suspect]
  2. MAGNESIUM (MAGNESIUM ASPARTATE) [Concomitant]
  3. CALCIUM [Concomitant]

REACTIONS (1)
  - BLOOD CALCIUM INCREASED [None]
